FAERS Safety Report 6738925-4 (Version None)
Quarter: 2010Q2

REPORT INFORMATION
  Report Type: 
  Country: None (occurrence: None)
  Receive Date: 20100524
  Receipt Date: 20100510
  Transmission Date: 20101027
  Serious: Yes (Death, Life-Threatening, Hospitalization)
  Sender: FDA-Public Use
  Company Number: JP-AMGEN-US403104

PATIENT
  Sex: Female
  Weight: 60 kg

DRUGS (11)
  1. ENBREL [Suspect]
     Indication: RHEUMATOID ARTHRITIS
     Route: 058
     Dates: start: 20100128, end: 20100318
  2. RHEUMATREX [Suspect]
     Indication: RHEUMATOID ARTHRITIS
     Dosage: 2 MG EVERY
     Route: 048
     Dates: start: 20080908
  3. PREDONINE [Suspect]
     Indication: RHEUMATOID ARTHRITIS
     Route: 048
     Dates: start: 20051201, end: 20100318
  4. AMLODIPINE [Concomitant]
     Route: 048
     Dates: start: 20080922
  5. NU-LOTAN [Concomitant]
     Route: 048
     Dates: start: 20080526
  6. SUNRYTHM [Concomitant]
     Route: 048
     Dates: start: 20090323
  7. LOXONIN [Concomitant]
     Route: 048
     Dates: start: 20080526
  8. MUCOSTA [Concomitant]
     Route: 048
     Dates: start: 20080526
  9. GOSHAJINKIGAN [Concomitant]
     Route: 048
     Dates: start: 20080526
  10. FOSAMAX [Concomitant]
     Route: 048
     Dates: start: 20080526
  11. OMEPRAL [Concomitant]
     Route: 048
     Dates: start: 20080525

REACTIONS (5)
  - DIARRHOEA [None]
  - OROPHARYNGEAL PAIN [None]
  - PLATELET COUNT DECREASED [None]
  - PNEUMONIA [None]
  - SEPSIS [None]
